FAERS Safety Report 4598396-3 (Version None)
Quarter: 2005Q1

REPORT INFORMATION
  Report Type: 
  Country: None (occurrence: None)
  Receive Date: 20050303
  Receipt Date: 20050303
  Transmission Date: 20050727
  Serious: Yes (Death)
  Sender: FDA-Public Use
  Company Number: None

PATIENT
  Sex: Male

DRUGS (1)
  1. INTERERFERON-ALPHA [Suspect]
     Indication: RENAL CELL CARCINOMA STAGE UNSPECIFIED
     Dosage: 9.0 MU SC 3X/WEEK CYCLE =4 WEEK
     Route: 058
     Dates: start: 20050124

REACTIONS (5)
  - ATRIAL FLUTTER [None]
  - CARDIAC ARREST [None]
  - DISEASE PROGRESSION [None]
  - HYPERTENSION [None]
  - RENAL CELL CARCINOMA STAGE UNSPECIFIED [None]
